FAERS Safety Report 6945049-X (Version None)
Quarter: 2010Q3

REPORT INFORMATION
  Report Type: 
  Country: None (occurrence: None)
  Receive Date: 20100827
  Receipt Date: 20100813
  Transmission Date: 20110219
  Serious: Yes (Hospitalization, Other)
  Sender: FDA-Public Use
  Company Number: PHHY2010DE27963

PATIENT
  Sex: Male

DRUGS (4)
  1. RITALIN [Suspect]
     Indication: ATTENTION DEFICIT/HYPERACTIVITY DISORDER
     Dosage: 30 MG, QD
     Route: 048
     Dates: start: 20080827
  2. RITALIN [Suspect]
     Dosage: 40-50 MG/DAY
     Route: 048
  3. RITALIN [Suspect]
     Dosage: 20 DF WITH A SNORT LINE
  4. RITALIN [Suspect]
     Dosage: 30 MG, QD
     Route: 048
     Dates: end: 20100504

REACTIONS (7)
  - ALCOHOLISM [None]
  - CONFUSIONAL STATE [None]
  - DRUG DEPENDENCE [None]
  - INTENTIONAL DRUG MISUSE [None]
  - INTENTIONAL OVERDOSE [None]
  - SLEEP DISORDER [None]
  - SOMNOLENCE [None]
